FAERS Safety Report 10771856 (Version 2)
Quarter: 2015Q1

REPORT INFORMATION
  Report Type: Spontaneous
  Country: US (occurrence: US)
  Receive Date: 20150206
  Receipt Date: 20150224
  Transmission Date: 20150721
  Serious: Yes (Other)
  Sender: FDA-Public Use
  Company Number: US-JAZZ-2015-US-001481

PATIENT
  Sex: Female
  Weight: 64.63 kg

DRUGS (4)
  1. XYREM [Suspect]
     Active Substance: SODIUM OXYBATE
     Indication: NARCOLEPSY
     Dosage: 2.25 G, BID
     Route: 048
     Dates: start: 201301, end: 2013
  2. DEXEDRINE [Concomitant]
     Active Substance: DEXTROAMPHETAMINE SULFATE
     Indication: PRODUCT USED FOR UNKNOWN INDICATION
     Dosage: 50 MG, QD (30 MG IN THE AM AND 20 MG AROUND NOON)
     Route: 048
  3. XYREM [Suspect]
     Active Substance: SODIUM OXYBATE
     Indication: CATAPLEXY
     Dosage: DOSE ADJUSTMENTS
     Route: 048
     Dates: start: 2013, end: 2014
  4. XYREM [Suspect]
     Active Substance: SODIUM OXYBATE
     Dosage: 3.5 G, BID
     Route: 048
     Dates: start: 201408

REACTIONS (10)
  - Muscular weakness [Unknown]
  - Muscle spasms [Unknown]
  - Mitochondrial myopathy [Unknown]
  - Abnormal dreams [Unknown]
  - Sleep apnoea syndrome [Unknown]
  - Choriomeningitis lymphocytic [Recovered/Resolved]
  - Hypersomnia [Recovered/Resolved]
  - Eyelid ptosis [Unknown]
  - Myalgia [Unknown]
  - Abasia [Unknown]

NARRATIVE: CASE EVENT DATE: 2014
